FAERS Safety Report 6882396-4 (Version None)
Quarter: 2010Q3

REPORT INFORMATION
  Report Type: 
  Country: None (occurrence: None)
  Receive Date: 20100729
  Receipt Date: 20100721
  Transmission Date: 20110219
  Serious: Yes (Other)
  Sender: FDA-Public Use
  Company Number: RU-BRISTOL-MYERS SQUIBB COMPANY-15191117

PATIENT
  Age: 30 Year
  Sex: Female
  Weight: 55 kg

DRUGS (4)
  1. ORENCIA [Suspect]
     Indication: RHEUMATOID ARTHRITIS
     Dosage: 400MG (TWO 200MG BOTTLES)
     Route: 042
     Dates: start: 20100501
  2. LEUKERAN [Concomitant]
     Dates: start: 20080601
  3. MELOXICAM [Concomitant]
  4. PREDNISOLONE [Concomitant]

REACTIONS (1)
  - UTERINE HAEMORRHAGE [None]
